FAERS Safety Report 13725243 (Version 1)
Quarter: 2017Q3

REPORT INFORMATION
  Report Type: Spontaneous
  Country: PT (occurrence: PT)
  Receive Date: 20170706
  Receipt Date: 20170706
  Transmission Date: 20171127
  Serious: Yes (Life-Threatening)
  Sender: FDA-Public Use
  Company Number: PT-BAYER-2017-125678

PATIENT
  Age: 53 Year
  Sex: Male

DRUGS (3)
  1. WARFARIN [Interacting]
     Active Substance: WARFARIN
     Indication: THROMBOANGIITIS OBLITERANS
  2. CEFTRIAXONE. [Concomitant]
     Active Substance: CEFTRIAXONE
     Indication: ANTIBIOTIC PROPHYLAXIS
  3. ACETYLSALICYLIC ACID({=100 MG) [Suspect]
     Active Substance: ASPIRIN
     Indication: THROMBOANGIITIS OBLITERANS

REACTIONS (5)
  - Sepsis [Recovered/Resolved]
  - Syncope [Recovered/Resolved]
  - Product use in unapproved indication [None]
  - Off label use [None]
  - Waterhouse-Friderichsen syndrome [Recovered/Resolved]
